FAERS Safety Report 8525279-6 (Version None)
Quarter: 2012Q3

REPORT INFORMATION
  Report Type: 
  Country: None (occurrence: None)
  Receive Date: 20120720
  Receipt Date: 20120717
  Transmission Date: 20120928
  Serious: Yes (Hospitalization, Other)
  Sender: FDA-Public Use
  Company Number: PHHY2012DE020055

PATIENT
  Sex: Female
  Weight: 59 kg

DRUGS (1)
  1. GILENYA [Suspect]
     Indication: MULTIPLE SCLEROSIS
     Dosage: 0.5 MG, QD
     Route: 048
     Dates: start: 20110701

REACTIONS (6)
  - MULTIPLE SCLEROSIS RELAPSE [None]
  - VERTIGO [None]
  - C-REACTIVE PROTEIN INCREASED [None]
  - CENTRAL NERVOUS SYSTEM LESION [None]
  - GAIT DISTURBANCE [None]
  - FALL [None]
